FAERS Safety Report 18942761 (Version 2)
Quarter: 2021Q2

REPORT INFORMATION
  Report Type: Report from Study
  Country: None (occurrence: US)
  Receive Date: 20210225
  Receipt Date: 20210405
  Transmission Date: 20210717
  Serious: Yes (Hospitalization)
  Sender: FDA-Public Use
  Company Number: US-ABBVIE-21K-163-3790093-00

PATIENT
  Sex: Female

DRUGS (4)
  1. VENCLEXTA [Suspect]
     Active Substance: VENETOCLAX
     Dosage: THEN 400MG DAILY THEREAFTER
     Route: 048
     Dates: start: 20210222
  2. TIBSOVO [Concomitant]
     Active Substance: IVOSIDENIB
     Indication: ACUTE MYELOID LEUKAEMIA
     Route: 048
     Dates: start: 20210219
  3. VENCLEXTA [Suspect]
     Active Substance: VENETOCLAX
     Dosage: THEN 200MG FOR 1 DAYS
     Route: 048
     Dates: start: 20210221, end: 20210221
  4. VENCLEXTA [Suspect]
     Active Substance: VENETOCLAX
     Indication: ACUTE MYELOID LEUKAEMIA
     Dosage: VENCLEXTA 100MG TABLETS 100MG FOR 2 DAYS
     Route: 048
     Dates: start: 20210219, end: 20210220

REACTIONS (1)
  - Paranasal sinus neoplasm [Unknown]
